FAERS Safety Report 8576325-5 (Version None)
Quarter: 2012Q3

REPORT INFORMATION
  Report Type: 
  Country: None (occurrence: None)
  Receive Date: 20120724
  Receipt Date: 20120713
  Transmission Date: 20120928
  Serious: Yes (Other)
  Sender: FDA-Public Use
  Company Number: AUR-APL-2012-03090

PATIENT
  Age: 46 Year
  Sex: Female

DRUGS (1)
  1. AMOXICILLIN [Suspect]
     Indication: ANTIBIOTIC THERAPY
     Dosage: 1 G/DAY, ORAL
     Route: 048
     Dates: start: 20120701, end: 20120701

REACTIONS (3)
  - ACUTE TONSILLITIS [None]
  - URTICARIA [None]
  - RASH [None]
